FAERS Safety Report 16089431 (Version 8)
Quarter: 2019Q3

REPORT INFORMATION
  Report Type: Spontaneous
  Country: US (occurrence: US)
  Receive Date: 20190319
  Receipt Date: 20190830
  Transmission Date: 20191004
  Serious: Yes (Hospitalization, Other)
  Sender: FDA-Public Use
  Company Number: US-PFIZER INC-2019116760

PATIENT
  Age: 88 Year
  Sex: Female

DRUGS (3)
  1. LIPITOR [Suspect]
     Active Substance: ATORVASTATIN CALCIUM
     Dosage: 40 MG, UNK
     Dates: start: 2006
  2. NORVASC [Concomitant]
     Active Substance: AMLODIPINE BESYLATE
     Dosage: UNK
     Dates: start: 2006
  3. NITROSTAT [Concomitant]
     Active Substance: NITROGLYCERIN
     Dosage: UNK
     Dates: start: 2006

REACTIONS (11)
  - Cardiovascular disorder [Unknown]
  - Intraocular pressure increased [Unknown]
  - Psychomotor hyperactivity [Unknown]
  - Dyspnoea [Unknown]
  - Hypoaesthesia [Unknown]
  - Hypoacusis [Unknown]
  - Hypertension [Unknown]
  - Cerebrovascular accident [Unknown]
  - Cardiac failure congestive [Unknown]
  - Road traffic accident [Unknown]
  - Malaise [Unknown]
